FAERS Safety Report 20040407 (Version 1)
Quarter: 2021Q4

REPORT INFORMATION
  Report Type: Spontaneous
  Country: US (occurrence: None)
  Receive Date: 20211105
  Receipt Date: 20211105
  Transmission Date: 20220303
  Serious: Yes (Other)
  Sender: FDA-Public Use
  Company Number: None

PATIENT
  Sex: Female

DRUGS (1)
  1. TISAGENLECLEUCEL [Suspect]
     Active Substance: TISAGENLECLEUCEL

REACTIONS (4)
  - Cytokine release syndrome [None]
  - Neurotoxicity [None]
  - Atrial fibrillation [None]
  - Cerebellar infarction [None]

NARRATIVE: CASE EVENT DATE: 20210328
